FAERS Safety Report 5319380-8 (Version None)
Quarter: 2007Q2

REPORT INFORMATION
  Report Type: 
  Country: None (occurrence: None)
  Receive Date: 20070508
  Receipt Date: 20070501
  Transmission Date: 20071010
  Serious: Yes (Hospitalization, Other)
  Sender: FDA-Public Use
  Company Number: US-ELI_LILLY_AND_COMPANY-US200705000424

PATIENT
  Age: 49 Year
  Sex: Female
  Weight: 71.201 kg

DRUGS (11)
  1. BYETTA [Suspect]
     Indication: DIABETES MELLITUS NON-INSULIN-DEPENDENT
     Dosage: 5 UG, 2/D
     Route: 058
     Dates: start: 20051101, end: 20051201
  2. BYETTA [Suspect]
     Dosage: 10 UG, 2/D
     Route: 058
     Dates: start: 20051201, end: 20060101
  3. BYETTA [Suspect]
     Dosage: 5 UG, 2/D
     Route: 058
     Dates: start: 20060101, end: 20060601
  4. BYETTA [Suspect]
     Dosage: 5 UG, 2/D
     Route: 058
     Dates: start: 20060601, end: 20070301
  5. PLAQUENIL [Concomitant]
     Indication: RHEUMATOID ARTHRITIS
     Dosage: 200 MG, 2/D
     Route: 048
     Dates: start: 19900101
  6. METFORMIN HCL [Concomitant]
     Indication: DIABETES MELLITUS NON-INSULIN-DEPENDENT
     Dosage: 500 MG, DAILY (1/D)
     Route: 048
     Dates: start: 20051101, end: 20060101
  7. METFORMIN HCL [Concomitant]
     Dosage: 1000 MG, DAILY (1/D)
     Route: 048
     Dates: start: 20070401
  8. NEUROTON [Concomitant]
     Indication: MULTIPLE SCLEROSIS
     Dosage: 325 MG, 3/D
     Route: 048
     Dates: start: 19950101
  9. NEUROTON [Concomitant]
     Dosage: 650 MG, DAILY (1/D)
     Route: 048
     Dates: start: 19950101
  10. ALBUTEROL [Concomitant]
     Indication: ASTHMA
     Dosage: UNK, DAILY (1/D)
     Route: 055
     Dates: start: 19900101
  11. ASMACORT [Concomitant]
     Indication: ASTHMA
     Dosage: 1 UNK, DAILY (1/D)
     Route: 055
     Dates: start: 19900101

REACTIONS (15)
  - AMNESIA [None]
  - ARTHRALGIA [None]
  - ARTHROPATHY [None]
  - BLOOD GLUCOSE DECREASED [None]
  - COMA [None]
  - GRAND MAL CONVULSION [None]
  - JOINT SWELLING [None]
  - NERVOUSNESS [None]
  - PARTIAL SEIZURES [None]
  - PNEUMONIA [None]
  - RHEUMATOID ARTHRITIS [None]
  - TREMOR [None]
  - VOMITING [None]
  - WEIGHT DECREASED [None]
  - WEIGHT INCREASED [None]
